FAERS Safety Report 14859393 (Version 1)
Quarter: 2018Q2

REPORT INFORMATION
  Report Type: Spontaneous
  Country: GB (occurrence: GB)
  Receive Date: 20180508
  Receipt Date: 20180508
  Transmission Date: 20180711
  Serious: Yes (Other)
  Sender: FDA-Public Use
  Company Number: PHHY2018GB001147

PATIENT
  Age: 92 Year
  Sex: Female
  Weight: 48.53 kg

DRUGS (2)
  1. AMOXICILLIN. [Suspect]
     Active Substance: AMOXICILLIN
     Indication: LOWER RESPIRATORY TRACT INFECTION
     Dosage: 30 ML, QD (7 DAYS, ONLY GAVE 10 DOSES DUE TO ALLERGY.)
     Route: 048
     Dates: start: 20180121, end: 20180124
  2. BISACODYL. [Concomitant]
     Active Substance: BISACODYL
     Indication: PRODUCT USED FOR UNKNOWN INDICATION
     Route: 065

REACTIONS (3)
  - Drug hypersensitivity [Unknown]
  - Nail discolouration [Recovered/Resolved]
  - Scleral discolouration [Recovered/Resolved]

NARRATIVE: CASE EVENT DATE: 20180123
